FAERS Safety Report 7069674-3 (Version None)
Quarter: 2010Q4

REPORT INFORMATION
  Report Type: 
  Country: None (occurrence: None)
  Receive Date: 20101028
  Receipt Date: 20100426
  Transmission Date: 20110411
  Serious: No
  Sender: FDA-Public Use
  Company Number: US-WYE-H14949410

PATIENT
  Sex: Female
  Weight: 80.36 kg

DRUGS (2)
  1. EFFEXOR [Suspect]
     Indication: DEPRESSION
     Route: 048
  2. TRAZODONE [Concomitant]

REACTIONS (1)
  - DRUG SCREEN FALSE POSITIVE [None]
